FAERS Safety Report 13616077 (Version 1)
Quarter: 2017Q2

REPORT INFORMATION
  Report Type: Spontaneous
  Country: BE (occurrence: BE)
  Receive Date: 20170606
  Receipt Date: 20170606
  Transmission Date: 20170830
  Serious: Yes (Disabling)
  Sender: FDA-Public Use
  Company Number: BE-BAYER-2017-102177

PATIENT
  Sex: Female

DRUGS (1)
  1. MIRENA [Suspect]
     Active Substance: LEVONORGESTREL
     Indication: CONTRACEPTION
     Dosage: 20 MCG/24HR, CONT
     Route: 015

REACTIONS (15)
  - Vertigo [None]
  - Abdominal pain lower [None]
  - Nervousness [None]
  - Arthralgia [None]
  - Headache [None]
  - Vaginal discharge [None]
  - Weight increased [None]
  - Gastrooesophageal reflux disease [None]
  - Dermatitis [None]
  - Anxiety [None]
  - Depressed mood [None]
  - Fatigue [None]
  - Amnesia [None]
  - Tachycardia [None]
  - Blood pressure fluctuation [None]

NARRATIVE: CASE EVENT DATE: 20041020
